FAERS Safety Report 26007607 (Version 3)
Quarter: 2025Q4

REPORT INFORMATION
  Report Type: Spontaneous
  Country: JP (occurrence: JP)
  Receive Date: 20251106
  Receipt Date: 20251222
  Transmission Date: 20260118
  Serious: Yes (Life-Threatening, Other)
  Sender: ALEXION PHARMACEUTICALS
  Company Number: JP-ASTRAZENECA-202510JPN031626JP

PATIENT
  Age: 71 Year
  Sex: Female
  Weight: 53.3 kg

DRUGS (4)
  1. IMFINZI [Suspect]
     Active Substance: DURVALUMAB
     Indication: Endometrial cancer
     Dosage: 1120 MILLIGRAM, Q3W
     Dates: start: 20250313
  2. IMFINZI [Suspect]
     Active Substance: DURVALUMAB
     Dosage: 1500 MILLIGRAM, Q4W
  3. PACLITAXEL [Concomitant]
     Active Substance: PACLITAXEL
     Dosage: 180 MILLIGRAM/SQ. METER
     Route: 065
  4. CARBOPLATIN [Concomitant]
     Active Substance: CARBOPLATIN
     Route: 065

REACTIONS (5)
  - Neutrophil count decreased [Recovered/Resolved]
  - Anaemia [Recovered/Resolved]
  - Thyroiditis [Unknown]
  - Hypothyroidism [Not Recovered/Not Resolved]
  - Hyperthyroidism [Unknown]

NARRATIVE: CASE EVENT DATE: 20250410
